FAERS Safety Report 6129406-X (Version None)
Quarter: 2009Q1

REPORT INFORMATION
  Report Type: 
  Country: None (occurrence: None)
  Receive Date: 20090324
  Receipt Date: 20090312
  Transmission Date: 20090719
  Serious: Yes (Other)
  Sender: FDA-Public Use
  Company Number: US-JNJFOC-20090104814

PATIENT
  Sex: Female
  Weight: 79.38 kg

DRUGS (22)
  1. REMICADE [Suspect]
     Route: 042
  2. REMICADE [Suspect]
     Route: 042
  3. REMICADE [Suspect]
     Route: 042
  4. REMICADE [Suspect]
     Indication: RHEUMATOID ARTHRITIS
     Route: 042
  5. DILAUDID [Suspect]
     Indication: DRUG USE FOR UNKNOWN INDICATION
  6. MORPHINE SULFATE [Suspect]
     Indication: SURGERY
  7. PRILOSEC [Concomitant]
     Route: 048
  8. METHOTREXATE [Concomitant]
  9. PIROXICAM [Concomitant]
  10. PLAQUENIL [Concomitant]
     Route: 048
  11. PREDNISONE [Concomitant]
     Route: 048
  12. PREDNISONE [Concomitant]
     Route: 048
  13. PREMARIN [Concomitant]
  14. MICRO-K [Concomitant]
     Route: 048
  15. ATENOLOL [Concomitant]
  16. BENADRYL [Concomitant]
     Indication: SLEEP DISORDER
     Route: 048
  17. FOLIC ACID [Concomitant]
     Route: 048
  18. DURAGESIC-100 [Concomitant]
  19. LASIX [Concomitant]
     Route: 048
  20. LYRICA [Concomitant]
     Route: 048
  21. SPIRONOLACTONE [Concomitant]
     Route: 048
  22. MULTI-VITAMINS [Concomitant]

REACTIONS (7)
  - ARTHRALGIA [None]
  - INFUSION RELATED REACTION [None]
  - PRURITUS [None]
  - RASH ERYTHEMATOUS [None]
  - SPINAL FUSION SURGERY [None]
  - SWELLING [None]
  - TOOTH INFECTION [None]
